FAERS Safety Report 5334139-3 (Version None)
Quarter: 2007Q2

REPORT INFORMATION
  Report Type: 
  Country: None (occurrence: None)
  Receive Date: 20070525
  Receipt Date: 20070514
  Transmission Date: 20071010
  Serious: Yes (Hospitalization)
  Sender: FDA-Public Use
  Company Number: SE-BAYER-200712743GDS

PATIENT
  Age: 37 Year
  Sex: Female

DRUGS (4)
  1. ACETYLSALICYLIC ACID SRT [Suspect]
     Indication: DRUG USE FOR UNKNOWN INDICATION
     Route: 065
  2. FOLIC ACID [Suspect]
     Indication: DRUG USE FOR UNKNOWN INDICATION
     Route: 065
  3. VITAMINS [Suspect]
     Indication: DRUG USE FOR UNKNOWN INDICATION
     Route: 065
  4. PAINKILLERS [Concomitant]

REACTIONS (8)
  - ANOREXIA [None]
  - BLISTER [None]
  - GENITAL ULCERATION [None]
  - MOUTH ULCERATION [None]
  - RASH ERYTHEMATOUS [None]
  - RECTAL ULCER [None]
  - SKIN ULCER [None]
  - STEVENS-JOHNSON SYNDROME [None]
